FAERS Safety Report 24141747 (Version 1)
Quarter: 2024Q3

REPORT INFORMATION
  Report Type: Spontaneous
  Country: US (occurrence: US)
  Receive Date: 20240726
  Receipt Date: 20240726
  Transmission Date: 20241017
  Serious: No
  Sender: BLUEPRINT MEDICINES
  Company Number: US-Blueprint Medicines Corporation-4281

PATIENT
  Sex: Female

DRUGS (2)
  1. AYVAKIT [Suspect]
     Active Substance: AVAPRITINIB
     Indication: Advanced systemic mastocytosis
     Dosage: 75MG DAILY
     Route: 065
     Dates: start: 20230101
  2. AYVAKIT [Suspect]
     Active Substance: AVAPRITINIB
     Dosage: 75MG DAILY
     Route: 065
     Dates: start: 20230101

REACTIONS (5)
  - Blister rupture [Unknown]
  - Eye haemorrhage [Unknown]
  - Platelet count increased [Unknown]
  - White blood cell count decreased [Unknown]
  - Red blood cell count decreased [Unknown]
